FAERS Safety Report 14695448 (Version 6)
Quarter: 2018Q2

REPORT INFORMATION
  Report Type: Spontaneous
  Country: DE (occurrence: DE)
  Receive Date: 20180329
  Receipt Date: 20180607
  Transmission Date: 20180711
  Serious: Yes (Other)
  Sender: FDA-Public Use
  Company Number: PHHY2018DE054708

PATIENT
  Age: 56 Year
  Sex: Female
  Weight: 59 kg

DRUGS (12)
  1. ESTRADIOL. [Suspect]
     Active Substance: ESTRADIOL
     Indication: MENOPAUSAL SYMPTOMS
     Dosage: 2 DF, QD (2 PUFFS DAILY (UNKNOWN, 2 IN 1D))
     Route: 062
     Dates: start: 2012, end: 201701
  2. ESTRADIOL. [Suspect]
     Active Substance: ESTRADIOL
     Dosage: 2 DF, QD (1 PUFFS DAILY (UNKNOWN, 2 IN 1D))
     Route: 062
     Dates: start: 201701, end: 201705
  3. PROGESTAN [Suspect]
     Active Substance: PROGESTERONE
     Dosage: 1 DF, QOD (1 CAPSULE EVERY SECOND EVENING)
     Route: 048
     Dates: start: 201701, end: 201705
  4. LERCANIDIPINE [Concomitant]
     Active Substance: LERCANIDIPINE
     Indication: HYPERTENSION
     Dosage: UNK
     Route: 065
  5. L-THYROXINE [Concomitant]
     Active Substance: LEVOTHYROXINE
     Indication: HYPOTHYROIDISM
     Dosage: 50 UG, QD
     Route: 065
  6. PROGESTAN [Suspect]
     Active Substance: PROGESTERONE
     Dosage: 1 DF, QD
     Route: 048
     Dates: start: 201711, end: 20180119
  7. GYNOKADIN [Suspect]
     Active Substance: ESTRADIOL
     Indication: HORMONE REPLACEMENT THERAPY
     Dosage: 2 MG, QD (2 PUFFS DAILY)
     Route: 062
     Dates: start: 2012, end: 201701
  8. GYNOKADIN [Suspect]
     Active Substance: ESTRADIOL
     Indication: MENOPAUSAL SYMPTOMS
     Dosage: 1 MG, QD (1 PUFF DAILY)
     Route: 062
     Dates: start: 201701, end: 201705
  9. GYNOKADIN [Suspect]
     Active Substance: ESTRADIOL
     Dosage: 1 DF, QD (1 PUFF DAILY)
     Route: 062
     Dates: start: 201711, end: 20180119
  10. ESTRADIOL. [Suspect]
     Active Substance: ESTRADIOL
     Dosage: 1 DF, QD (2 PUFFS DAILY (UNKNOWN, 1 IN 1 D)
     Route: 062
     Dates: start: 201711, end: 20180119
  11. PROGESTAN [Suspect]
     Active Substance: PROGESTERONE
     Indication: PREVENTION OF ENDOMETRIAL HYPERPLASIA
     Dosage: 1 DF, QD
     Route: 048
     Dates: start: 2012, end: 201701
  12. RAMIPRIL. [Concomitant]
     Active Substance: RAMIPRIL
     Indication: HYPERTENSION
     Dosage: UNK
     Route: 065

REACTIONS (7)
  - Off label use [Unknown]
  - Blood alkaline phosphatase increased [Recovering/Resolving]
  - Asthenia [Recovering/Resolving]
  - Thrombocytopenia [Recovering/Resolving]
  - Blood lactate dehydrogenase increased [Recovering/Resolving]
  - Transaminases increased [Recovering/Resolving]
  - Gamma-glutamyltransferase increased [Recovering/Resolving]

NARRATIVE: CASE EVENT DATE: 2017
